FAERS Safety Report 12318597 (Version 2)
Quarter: 2016Q3

REPORT INFORMATION
  Report Type: Spontaneous
  Country: RU (occurrence: RU)
  Receive Date: 20160429
  Receipt Date: 20160913
  Transmission Date: 20161109
  Serious: Yes (Death, Hospitalization, Other)
  Sender: FDA-Public Use
  Company Number: RU-BAYER-2015-477171

PATIENT
  Age: 19 Year
  Sex: Female

DRUGS (1)
  1. YARINA [Suspect]
     Active Substance: DROSPIRENONE\ETHINYL ESTRADIOL
     Indication: CONTRACEPTION
     Dosage: UNK
     Route: 048
     Dates: start: 201503, end: 201509

REACTIONS (17)
  - Pulmonary artery thrombosis [Fatal]
  - Pain [None]
  - Metrorrhagia [None]
  - Rales [None]
  - Apnoea [None]
  - Pneumonia [None]
  - Musculoskeletal pain [None]
  - Intercostal neuralgia [None]
  - Musculoskeletal pain [None]
  - Pyrexia [None]
  - Menstrual disorder [None]
  - Hyperthyroidism [None]
  - Asthenia [None]
  - Tachycardia [None]
  - Myocardial infarction [Fatal]
  - Loss of consciousness [None]
  - Myositis [None]

NARRATIVE: CASE EVENT DATE: 2015
